FAERS Safety Report 4268738-7 (Version None)
Quarter: 2004Q1

REPORT INFORMATION
  Report Type: 
  Country: None (occurrence: None)
  Receive Date: 20040108
  Receipt Date: 20040105
  Transmission Date: 20041129
  Serious: Yes (Death)
  Sender: FDA-Public Use
  Company Number: US-JNJFOC-20040100450

PATIENT
  Age: 82 Year
  Sex: Female

DRUGS (2)
  1. RISPERDAL [Suspect]
     Indication: SCHIZOPHRENIA
     Dosage: 1 MG 1 IN 1 DAY ORAL
     Route: 048
     Dates: start: 20020301, end: 20031101
  2. ARICEPT [Concomitant]

REACTIONS (1)
  - CARDIOVASCULAR DISORDER [None]
